FAERS Safety Report 6491426-3 (Version None)
Quarter: 2009Q4

REPORT INFORMATION
  Report Type: 
  Country: None (occurrence: None)
  Receive Date: 20091211
  Receipt Date: 20091211
  Transmission Date: 20100525
  Serious: Yes (Other)
  Sender: FDA-Public Use
  Company Number: GB-WYE-G05123509

PATIENT
  Age: 75 Year
  Sex: Male

DRUGS (7)
  1. IBUPROFEN [Suspect]
     Indication: PAIN
     Route: 048
  2. PERGOLIDE [Concomitant]
     Indication: PARKINSON'S DISEASE
     Route: 048
  3. STALEVO 100 [Concomitant]
     Indication: PARKINSON'S DISEASE
     Dosage: UNKNOWN
     Route: 048
  4. RIVASTIGMINE [Concomitant]
     Indication: PARKINSON'S DISEASE
     Route: 048
  5. SINEMET [Concomitant]
     Dosage: UNKNOWN
     Route: 048
  6. CLOZARIL [Suspect]
     Indication: SCHIZOPHRENIA
     Route: 048
     Dates: start: 20060926
  7. QUETIAPINE [Concomitant]
     Indication: PARKINSON'S DISEASE
     Route: 048

REACTIONS (3)
  - ANAEMIA [None]
  - EOSINOPHIL COUNT INCREASED [None]
  - HAEMOGLOBIN DECREASED [None]
